FAERS Safety Report 9495879 (Version 2)
Quarter: 2013Q3

REPORT INFORMATION
  Report Type: Spontaneous
  Country: FR (occurrence: FR)
  Receive Date: 20130903
  Receipt Date: 20130910
  Transmission Date: 20140515
  Serious: Yes (Hospitalization)
  Sender: FDA-Public Use
  Company Number: FR-ASTRAZENECA-2013SE65992

PATIENT
  Age: 26092 Day
  Sex: Male

DRUGS (6)
  1. BRILIQUE [Suspect]
     Indication: ANGIOPLASTY
     Route: 048
     Dates: start: 20130820
  2. TRIATEC [Suspect]
     Dates: end: 20130827
  3. KARDEGIC [Suspect]
     Indication: ANGIOPLASTY
     Dates: start: 201308
  4. EUPANTOL [Suspect]
     Dates: end: 20130827
  5. CRESTOR [Concomitant]
     Route: 048
  6. BISOCE [Concomitant]

REACTIONS (2)
  - Thrombocytopenia [Recovered/Resolved]
  - Myocardial infarction [Unknown]
